FAERS Safety Report 15035340 (Version 9)
Quarter: 2018Q4

REPORT INFORMATION
  Report Type: Report from Study
  Country: JP (occurrence: JP)
  Receive Date: 20180620
  Receipt Date: 20181014
  Transmission Date: 20190204
  Serious: Yes (Death, Life-Threatening, Hospitalization, Disabling, Other)
  Sender: FDA-Public Use
  Company Number: JP-BEH-2018091925

PATIENT
  Age: 78 Year
  Sex: Male
  Weight: 44.6 kg

DRUGS (29)
  1. BERIPLEX P/N [Suspect]
     Active Substance: COAGULATION FACTOR IX HUMAN\COAGULATION FACTOR VII HUMAN\COAGULATION FACTOR X HUMAN\PROTEIN C\PROTEIN S HUMAN\PROTHROMBIN
     Indication: SURGERY
     Dosage: 1500 IU, UNK
     Route: 042
     Dates: start: 20180419
  2. KAYTWO [Concomitant]
     Active Substance: MENATETRENONE
     Indication: PROCOAGULANT THERAPY
     Dosage: 30 MG, UNK
     Route: 065
     Dates: start: 20180418, end: 20180419
  3. LEVOTHYROXINE NA [Concomitant]
     Active Substance: LEVOTHYROXINE SODIUM
     Indication: HYPOTHYROIDISM
     Dosage: UNK
     Route: 048
     Dates: end: 20180517
  4. ERIL                               /00502402/ [Concomitant]
     Dosage: UNK
     Route: 065
     Dates: start: 20180328, end: 20180408
  5. WARFARIN [Concomitant]
     Active Substance: WARFARIN
     Indication: PROPHYLAXIS
     Dosage: 2 MG, UNK
     Route: 048
     Dates: start: 20180403, end: 20180406
  6. TANADOPA [Concomitant]
     Active Substance: DOCARPAMINE
     Indication: CARDIAC FAILURE
     Dosage: UNK
     Route: 048
     Dates: end: 20180517
  7. TANATRIL [Concomitant]
     Active Substance: IMIDAPRIL
     Dosage: UNK
     Route: 048
     Dates: end: 20180417
  8. NICARDIPINE [Concomitant]
     Active Substance: NICARDIPINE
     Dosage: UNK
     Route: 065
     Dates: start: 20180325, end: 20180401
  9. WARFARIN [Concomitant]
     Active Substance: WARFARIN
     Indication: ATRIAL FIBRILLATION
     Dosage: 2 MG, UNK
     Route: 048
     Dates: end: 20180324
  10. CEFTRIAXONE                        /00672202/ [Concomitant]
     Active Substance: CEFTRIAXONE
     Indication: PNEUMONIA
     Dosage: UNK
     Route: 065
     Dates: start: 20180401, end: 20180411
  11. BERIPLEX P/N [Suspect]
     Active Substance: COAGULATION FACTOR IX HUMAN\COAGULATION FACTOR VII HUMAN\COAGULATION FACTOR X HUMAN\PROTEIN C\PROTEIN S HUMAN\PROTHROMBIN
     Indication: HAEMORRHAGE
     Dosage: 1000 IU, UNK
     Route: 042
     Dates: start: 20180327
  12. BERIPLEX P/N [Suspect]
     Active Substance: COAGULATION FACTOR IX HUMAN\COAGULATION FACTOR VII HUMAN\COAGULATION FACTOR X HUMAN\PROTEIN C\PROTEIN S HUMAN\PROTHROMBIN
     Indication: THERAPEUTIC PROCEDURE
     Dosage: UNK
     Route: 042
  13. PROTAMINE [Concomitant]
     Active Substance: PROTAMINE
     Route: 065
  14. HEPARIN [Concomitant]
     Active Substance: HEPARIN SODIUM
     Indication: ATRIAL FIBRILLATION
     Dosage: 10000 IU, UNK
     Route: 065
     Dates: start: 20180403, end: 20180405
  15. GLYCEREB [Concomitant]
     Active Substance: FRUCTOSE\GLYCERIN
     Dosage: UNK
     Route: 065
     Dates: start: 20180328, end: 20180329
  16. WARFARIN [Concomitant]
     Active Substance: WARFARIN
     Dosage: 1 MG, UNK
     Route: 048
     Dates: start: 20180410, end: 20180412
  17. BERIPLEX P/N [Suspect]
     Active Substance: COAGULATION FACTOR IX HUMAN\COAGULATION FACTOR VII HUMAN\COAGULATION FACTOR X HUMAN\PROTEIN C\PROTEIN S HUMAN\PROTHROMBIN
     Indication: COAGULATION TIME PROLONGED
     Dosage: 1500 IU, UNK
     Route: 042
     Dates: start: 20180420
  18. ASPARA K [Concomitant]
     Active Substance: POTASSIUM ASPARTATE
     Indication: HYPOKALAEMIA
     Dosage: UNK
     Route: 048
     Dates: start: 20180409, end: 20180424
  19. PROTAMINE SULFATE. [Concomitant]
     Active Substance: PROTAMINE SULFATE
     Indication: COAGULATION TIME PROLONGED
     Dosage: UNK
     Route: 065
     Dates: start: 20180327, end: 20180327
  20. FRESH FROZEN PLASMA [Concomitant]
     Active Substance: HUMAN PLASMA
     Route: 065
  21. DAIKENTYUTO [Concomitant]
     Active Substance: HERBALS
     Indication: GASTROINTESTINAL HYPOMOTILITY
     Dosage: UNK
     Route: 048
     Dates: start: 20180331, end: 20180513
  22. SAMSCA [Concomitant]
     Active Substance: TOLVAPTAN
     Dosage: UNK
     Route: 048
     Dates: end: 20180428
  23. BISOPROLOL [Concomitant]
     Active Substance: BISOPROLOL
     Dosage: UNK
     Route: 065
     Dates: start: 20180330, end: 20180516
  24. PARIET [Concomitant]
     Active Substance: RABEPRAZOLE SODIUM
     Dosage: UNK
     Route: 048
     Dates: end: 20180330
  25. SURGICEL [Concomitant]
     Active Substance: CELLULOSE, OXIDIZED
     Route: 065
  26. BERIPLEX P/N [Suspect]
     Active Substance: COAGULATION FACTOR IX HUMAN\COAGULATION FACTOR VII HUMAN\COAGULATION FACTOR X HUMAN\PROTEIN C\PROTEIN S HUMAN\PROTHROMBIN
     Indication: HAEMORRHAGE INTRACRANIAL
     Dosage: UNK
     Route: 042
  27. WARFARIN [Concomitant]
     Active Substance: WARFARIN
     Dosage: 1.75 MG, UNK
     Route: 048
     Dates: start: 20180407, end: 20180408
  28. CORTRIL [Concomitant]
     Active Substance: HYDROCORTISONE
     Indication: ADRENAL INSUFFICIENCY
     Dosage: UNK
     Route: 048
     Dates: end: 20180517
  29. FUROSEMIDE. [Concomitant]
     Active Substance: FUROSEMIDE
     Dosage: UNK
     Route: 048
     Dates: end: 20180413

REACTIONS (8)
  - Acquired haemophilia [Not Recovered/Not Resolved]
  - Fluid retention [Fatal]
  - Cardiac failure congestive [Fatal]
  - Cerebral infarction [Not Recovered/Not Resolved]
  - Drug ineffective [Unknown]
  - Drug ineffective [Unknown]
  - Haemorrhagic diathesis [Not Recovered/Not Resolved]
  - Renal failure [Fatal]

NARRATIVE: CASE EVENT DATE: 2018
